FAERS Safety Report 21518252 (Version 6)
Quarter: 2023Q1

REPORT INFORMATION
  Report Type: Report from Study
  Country: US (occurrence: US)
  Receive Date: 20221028
  Receipt Date: 20230325
  Transmission Date: 20230418
  Serious: No
  Sender: FDA-Public Use
  Company Number: US-NOVARTISTESTPH-NVSC2022US242886

PATIENT
  Sex: Female

DRUGS (2)
  1. ENTRESTO [Suspect]
     Active Substance: SACUBITRIL\VALSARTAN
     Indication: Product used for unknown indication
     Dosage: 1 DOSAGE FORM, BID
     Route: 048
     Dates: start: 202210
  2. ENTRESTO [Suspect]
     Active Substance: SACUBITRIL\VALSARTAN
     Dosage: 1 DOSAGE FORM, BID
     Route: 048

REACTIONS (12)
  - Speech disorder [Unknown]
  - Dyspnoea [Unknown]
  - Throat clearing [Unknown]
  - Concomitant disease aggravated [Unknown]
  - Peripheral swelling [Unknown]
  - Weight increased [Unknown]
  - Visual impairment [Unknown]
  - Amnesia [Unknown]
  - Hypotension [Unknown]
  - Hypersensitivity [Unknown]
  - Cough [Unknown]
  - Wrong technique in product usage process [Unknown]
